FAERS Safety Report 8075500-6 (Version None)
Quarter: 2012Q1

REPORT INFORMATION
  Report Type: 
  Country: None (occurrence: None)
  Receive Date: 20120127
  Receipt Date: 20120126
  Transmission Date: 20120608
  Serious: Yes (Death, Other)
  Sender: FDA-Public Use
  Company Number: US-AMGEN-USASP2012005349

PATIENT
  Age: 80 Year
  Sex: Female

DRUGS (2)
  1. ANTINEOPLASTIC AGENTS [Concomitant]
     Indication: LUNG NEOPLASM MALIGNANT
  2. NEULASTA [Suspect]
     Indication: NEUTROPENIA
     Dosage: 6 MG, PER CHEMO REGIM

REACTIONS (2)
  - LEUKOCYTOSIS [None]
  - DEATH [None]
